FAERS Safety Report 7291695-6 (Version None)
Quarter: 2011Q1

REPORT INFORMATION
  Report Type: 
  Country: None (occurrence: None)
  Receive Date: 20110210
  Receipt Date: 20110210
  Transmission Date: 20110831
  Serious: Yes (Life-Threatening, Hospitalization, Disabling)
  Sender: FDA-Public Use
  Company Number: None

PATIENT
  Age: 27 Year
  Sex: Male
  Weight: 111.5849 kg

DRUGS (1)
  1. CLOZAPINE [Suspect]
     Dosage: 350 MG DAILY PO
     Route: 048

REACTIONS (2)
  - NEUROLEPTIC MALIGNANT SYNDROME [None]
  - REFUSAL OF TREATMENT BY PATIENT [None]
